FAERS Safety Report 9114644 (Version 1)
Quarter: 2013Q1

REPORT INFORMATION
  Report Type: Spontaneous
  Country: US (occurrence: None)
  Receive Date: 20130220
  Receipt Date: 20130220
  Transmission Date: 20140127
  Serious: Yes (Hospitalization)
  Sender: FDA-Public Use
  Company Number: None

PATIENT
  Age: 56 Year
  Sex: Female

DRUGS (7)
  1. PROCRIT [Suspect]
     Indication: HEPATITIS C
     Dosage: 20,000 UN ITS UNDER THE SKIN EVERY WEEK
     Dates: start: 201205
  2. PEGASYS [Concomitant]
  3. RIBASPHERE [Concomitant]
  4. TORSEMIDE [Concomitant]
  5. LISINOPRIL [Concomitant]
  6. VERAPAMIL [Concomitant]
  7. LANTUS [Concomitant]

REACTIONS (5)
  - Myocardial infarction [None]
  - Feeling abnormal [None]
  - Hypertension [None]
  - Chest discomfort [None]
  - Chest pain [None]
